FAERS Safety Report 8613066-X (Version None)
Quarter: 2012Q3

REPORT INFORMATION
  Report Type: 
  Country: None (occurrence: None)
  Receive Date: 20120822
  Receipt Date: 20120725
  Transmission Date: 20120928
  Serious: Yes (Other)
  Sender: FDA-Public Use
  Company Number: JP-009507513-2011SP006506

PATIENT

DRUGS (3)
  1. WARFARIN POTASSIUM [Suspect]
     Indication: CARDIAC DISORDER
     Dosage: DAILY DOSAGE UNKNOWN
     Route: 048
  2. REMERON [Suspect]
     Dosage: DAILY DOSAGE UNKNOWN
     Route: 048
  3. REMERON [Suspect]
     Indication: DEPRESSION
     Dosage: UNK
     Route: 048

REACTIONS (4)
  - PROTHROMBIN TIME PROLONGED [None]
  - INTERNATIONAL NORMALISED RATIO INCREASED [None]
  - DRUG INTERACTION [None]
  - EPISTAXIS [None]
